FAERS Safety Report 6379343-0 (Version None)
Quarter: 2009Q3

REPORT INFORMATION
  Report Type: 
  Country: None (occurrence: None)
  Receive Date: 20090928
  Receipt Date: 20090915
  Transmission Date: 20100115
  Serious: Yes (Hospitalization)
  Sender: FDA-Public Use
  Company Number: CA-GENENTECH-289959

PATIENT
  Sex: Female

DRUGS (6)
  1. TRASTUZUMAB [Suspect]
     Indication: BREAST CANCER
     Dosage: 500 MG, Q3W
     Route: 042
     Dates: start: 20090819
  2. AVASTIN [Suspect]
     Indication: BREAST CANCER
     Dosage: 935 MG, Q3W
     Route: 042
     Dates: start: 20090819
  3. DOCETAXEL [Suspect]
     Indication: BREAST CANCER
     Dosage: 119 MG, Q3W
     Route: 042
     Dates: start: 20090819
  4. CARBOPLATIN [Suspect]
     Indication: BREAST CANCER
     Dosage: 740 MG, Q3W
     Route: 042
     Dates: start: 20090819
  5. NORVASC [Concomitant]
     Indication: DRUG USE FOR UNKNOWN INDICATION
     Dosage: UNK
     Dates: start: 20090806
  6. IRON [Concomitant]
     Indication: DRUG USE FOR UNKNOWN INDICATION
     Dosage: UNK
     Dates: start: 20090720

REACTIONS (2)
  - LIVER FUNCTION TEST ABNORMAL [None]
  - NEUTROPENIA [None]
